FAERS Safety Report 24813790 (Version 2)
Quarter: 2025Q1

REPORT INFORMATION
  Report Type: Spontaneous
  Country: US (occurrence: US)
  Receive Date: 20250107
  Receipt Date: 20250312
  Transmission Date: 20250409
  Serious: Yes (Other)
  Sender: ABBVIE
  Company Number: US-ABBVIE-6071446

PATIENT
  Age: 22 Year
  Sex: Female
  Weight: 65.317 kg

DRUGS (1)
  1. LILETTA [Suspect]
     Active Substance: LEVONORGESTREL
     Indication: Product used for unknown indication
     Route: 015
     Dates: start: 20230808, end: 20241231

REACTIONS (2)
  - Uterine perforation [Unknown]
  - Device dislocation [Unknown]

NARRATIVE: CASE EVENT DATE: 20241231
